FAERS Safety Report 7998720-5 (Version None)
Quarter: 2011Q4

REPORT INFORMATION
  Report Type: 
  Country: None (occurrence: None)
  Receive Date: 20111221
  Receipt Date: 20111207
  Transmission Date: 20120403
  Serious: Yes (Life-Threatening, Other)
  Sender: FDA-Public Use
  Company Number: US-ALLERGAN-1116216US

PATIENT
  Sex: Female
  Weight: 90.703 kg

DRUGS (9)
  1. COUMADIN [Concomitant]
  2. FOSAMAX [Concomitant]
  3. HYZAAR [Concomitant]
  4. SANCTURA [Suspect]
     Indication: HYPERTONIC BLADDER
     Dosage: 20 MG, QD
     Route: 048
  5. LIPITOR [Concomitant]
  6. NORVASC [Concomitant]
  7. LEVOXYL [Concomitant]
  8. LOPRESSOR [Concomitant]
  9. SANCTURA [Suspect]
     Dosage: UNK
     Dates: start: 20050709

REACTIONS (10)
  - CONFUSIONAL STATE [None]
  - HALLUCINATION, VISUAL [None]
  - TREMOR [None]
  - TACHYCARDIA [None]
  - FALL [None]
  - CONTUSION [None]
  - CONSTIPATION [None]
  - ROAD TRAFFIC ACCIDENT [None]
  - FEELING ABNORMAL [None]
  - SLEEP DISORDER [None]
